FAERS Safety Report 4881326-4 (Version None)
Quarter: 2005Q4

REPORT INFORMATION
  Report Type: 
  Country: None (occurrence: None)
  Receive Date: 20051212
  Receipt Date: 20051025
  Transmission Date: 20060501
  Serious: Yes (Hospitalization)
  Sender: FDA-Public Use
  Company Number: 2005-01800

PATIENT
  Age: 79 Year
  Sex: Female
  Weight: 75.5 kg

DRUGS (15)
  1. VELCADE [Suspect]
     Indication: MULTIPLE MYELOMA
     Dosage: 2.40 MG ; 2.40 MG, 2/WEEK
     Dates: start: 20040817, end: 20041008
  2. VELCADE [Suspect]
     Indication: MULTIPLE MYELOMA
     Dosage: 2.40 MG ; 2.40 MG, 2/WEEK
     Dates: start: 20050711, end: 20050822
  3. NOVOLIN 70/30 [Concomitant]
  4. TOPROL-XL [Concomitant]
  5. LISINOPRIL [Concomitant]
  6. FEIGON [Concomitant]
  7. PAREGORIC (GLYCEROL, BENZOIC ACID, OPIUM, ANISE OIL, CAMPHOR, ETHANOL) [Concomitant]
  8. NEURONTIN [Concomitant]
  9. PREMARIN [Concomitant]
  10. RITALIN [Concomitant]
  11. LASIX [Concomitant]
  12. MEGACE [Concomitant]
  13. ESCITALOPRAM (ESCITALOPRAM) [Concomitant]
  14. POTASSIUM (POTASSIUM) [Concomitant]
  15. COUMADIN [Concomitant]

REACTIONS (3)
  - ASTHENIA [None]
  - DEHYDRATION [None]
  - DIARRHOEA [None]
